FAERS Safety Report 19366634 (Version 2)
Quarter: 2021Q4

REPORT INFORMATION
  Report Type: Spontaneous
  Country: CZ (occurrence: CZ)
  Receive Date: 20210603
  Receipt Date: 20211112
  Transmission Date: 20220303
  Serious: Yes (Life-Threatening)
  Sender: FDA-Public Use
  Company Number: None

PATIENT
  Age: 37 Year
  Sex: Female

DRUGS (3)
  1. QUETIAPINE FUMARATE [Suspect]
     Active Substance: QUETIAPINE FUMARATE
     Indication: Depression
     Dosage: CURRENT DOSAGE
  2. VENLAFAXINE HYDROCHLORIDE [Concomitant]
     Active Substance: VENLAFAXINE HYDROCHLORIDE
     Indication: Depression
     Dosage: CURRENT DOSAGE
  3. LYRICA [Concomitant]
     Active Substance: PREGABALIN
     Indication: Depression
     Route: 048
     Dates: start: 2018

REACTIONS (1)
  - Pituitary tumour [Not Recovered/Not Resolved]

NARRATIVE: CASE EVENT DATE: 20200801
